FAERS Safety Report 6828801-0 (Version None)
Quarter: 2010Q3

REPORT INFORMATION
  Report Type: 
  Country: None (occurrence: None)
  Receive Date: 20100709
  Receipt Date: 20070219
  Transmission Date: 20110219
  Serious: Yes (Other)
  Sender: FDA-Public Use
  Company Number: US-PFIZER INC-2007014202

PATIENT
  Sex: Female
  Weight: 60.8 kg

DRUGS (3)
  1. CHANTIX [Suspect]
     Indication: SMOKING CESSATION THERAPY
     Dates: start: 20070209, end: 20070218
  2. LAMICTAL [Concomitant]
  3. DEPO-PROVERA [Concomitant]

REACTIONS (5)
  - DYSGEUSIA [None]
  - DYSPNOEA [None]
  - MOTOR DYSFUNCTION [None]
  - TREMOR [None]
  - VISION BLURRED [None]
